FAERS Safety Report 13568380 (Version 1)
Quarter: 2017Q2

REPORT INFORMATION
  Report Type: Spontaneous
  Country: KR (occurrence: KR)
  Receive Date: 20170522
  Receipt Date: 20170522
  Transmission Date: 20170830
  Serious: Yes (Hospitalization)
  Sender: FDA-Public Use
  Company Number: KR-GLENMARK PHARMACEUTICALS-2017GMK027541

PATIENT
  Age: 50 Year
  Sex: Male

DRUGS (1)
  1. SULFAMETHOXAZOLE/TRIMETHOPRIM [Suspect]
     Active Substance: SULFAMETHOXAZOLE\TRIMETHOPRIM
     Indication: PNEUMOCYSTIS JIROVECII INFECTION
     Dosage: 2 DF, EVERY 8 HOURS
     Route: 048

REACTIONS (3)
  - Pneumocystis jirovecii infection [Unknown]
  - Condition aggravated [None]
  - Drug resistance [Unknown]
